FAERS Safety Report 7275713-7 (Version None)
Quarter: 2011Q1

REPORT INFORMATION
  Report Type: 
  Country: None (occurrence: None)
  Receive Date: 20110202
  Receipt Date: 20110202
  Transmission Date: 20110831
  Serious: Yes (Other)
  Sender: FDA-Public Use
  Company Number: None

PATIENT
  Age: 25 Year
  Sex: Female
  Weight: 68.0396 kg

DRUGS (2)
  1. YAZ [Suspect]
     Indication: CONTRACEPTION
     Dosage: 28 ONCE DAILY OTHER
     Route: 050
     Dates: start: 20040112, end: 20090526
  2. YASMIN [Suspect]

REACTIONS (4)
  - ABDOMINAL PAIN UPPER [None]
  - WEIGHT INCREASED [None]
  - GALLBLADDER DISORDER [None]
  - MENSTRUAL DISORDER [None]
